FAERS Safety Report 12888649 (Version 11)
Quarter: 2016Q4

REPORT INFORMATION
  Report Type: Report from Study
  Country: DE (occurrence: DE)
  Receive Date: 20161027
  Receipt Date: 20161208
  Transmission Date: 20170207
  Serious: Yes (Life-Threatening, Hospitalization, Other)
  Sender: FDA-Public Use
  Company Number: PHHY2016DE146853

PATIENT
  Sex: Male
  Weight: 62 kg

DRUGS (10)
  1. AMLODIPIN RATIOPHARM N [Concomitant]
     Indication: HYPERTENSION
     Dosage: 5 MG, BID
     Route: 048
     Dates: end: 20161009
  2. ENALAPRIL RATIOPHARM [Concomitant]
     Active Substance: ENALAPRIL
     Indication: HYPERTENSION
     Dosage: 10 MG, QD
     Route: 048
     Dates: end: 20161010
  3. METFORMIN ^RATIOPHARM^ [Concomitant]
     Indication: BLOOD GLUCOSE INCREASED
     Dosage: 850 MG, TID
     Route: 048
     Dates: start: 20150209, end: 20161010
  4. JANUVIA [Concomitant]
     Active Substance: SITAGLIPTIN PHOSPHATE
     Indication: BLOOD GLUCOSE INCREASED
     Dosage: 50 MG, QD
     Route: 048
     Dates: start: 20161018
  5. VOTRIENT [Suspect]
     Active Substance: PAZOPANIB HYDROCHLORIDE
     Indication: METASTATIC RENAL CELL CARCINOMA
     Dosage: 800 MG, QD
     Route: 048
     Dates: start: 20160824, end: 20160927
  6. PANTOPRAZOL HENNIG [Concomitant]
     Indication: PROPHYLAXIS
     Dosage: 40 MG, PRN
     Route: 048
     Dates: start: 20160913, end: 20161009
  7. METFORMIN ^RATIOPHARM^ [Concomitant]
     Indication: GLYCOSYLATED HAEMOGLOBIN INCREASED
  8. BELOC-ZOK COMP [Concomitant]
     Active Substance: HYDROCHLOROTHIAZIDE\METOPROLOL SUCCINATE
     Indication: HYPERTENSION
     Dosage: 95 MG, BID
     Route: 048
  9. PANTOPRAZOL HENNIG [Concomitant]
     Dosage: 40 MG, QD
     Route: 048
     Dates: start: 20161018
  10. METOPROLOL. [Concomitant]
     Active Substance: METOPROLOL
     Indication: HYPERTENSION
     Dosage: 47.5 MG, BID
     Route: 048
     Dates: start: 20161018

REACTIONS (15)
  - Aspartate aminotransferase decreased [Unknown]
  - Alanine aminotransferase decreased [Unknown]
  - Blood urea increased [Unknown]
  - Thrombocytopenia [Recovered/Resolved]
  - Transaminases increased [Recovered/Resolved]
  - Decreased appetite [Recovered/Resolved]
  - Dysgeusia [Recovered/Resolved]
  - Diarrhoea [Recovered/Resolved]
  - Nausea [Recovered/Resolved]
  - Acute kidney injury [Recovered/Resolved]
  - Abdominal pain [Recovered/Resolved]
  - Hypophagia [Recovered/Resolved]
  - Aspartate aminotransferase increased [Unknown]
  - Blood creatinine increased [Unknown]
  - Alanine aminotransferase increased [Unknown]

NARRATIVE: CASE EVENT DATE: 20160908
